FAERS Safety Report 7520019-1 (Version None)
Quarter: 2011Q2

REPORT INFORMATION
  Report Type: 
  Country: None (occurrence: None)
  Receive Date: 20110602
  Receipt Date: 20110527
  Transmission Date: 20111010
  Serious: Yes (Death, Hospitalization, Other)
  Sender: FDA-Public Use
  Company Number: PHHY2011US43599

PATIENT
  Sex: Male

DRUGS (8)
  1. GLEEVEC [Suspect]
     Indication: CHRONIC MYELOID LEUKAEMIA
     Dosage: 300 MG, DAILY
     Route: 048
  2. REQUIP [Concomitant]
     Indication: RESTLESS LEGS SYNDROME
     Dosage: 1 MG, DAILY
     Route: 048
  3. PROTONIX [Concomitant]
     Dosage: 40 MG, DAILY
     Route: 065
  4. PAXIL [Concomitant]
     Indication: DEPRESSION
     Dosage: 40 MG, DAILY
     Route: 065
  5. ATIVAN [Concomitant]
     Indication: ANXIETY
     Dosage: 1 MG, QID
     Route: 065
  6. ASPIRIN [Concomitant]
     Dosage: 81 MG, DAILY
  7. PLAVIX [Concomitant]
     Dosage: 75 MG, DAILY
  8. COMPAZINE [Concomitant]
     Indication: NAUSEA
     Dosage: 10 MG, QID
     Route: 065

REACTIONS (9)
  - ASTHENIA [None]
  - PYREXIA [None]
  - BLOOD PRESSURE DIASTOLIC DECREASED [None]
  - AORTIC STENOSIS [None]
  - CARDIOMYOPATHY [None]
  - FATIGUE [None]
  - MYOCARDIAL INFARCTION [None]
  - BLOOD URINE PRESENT [None]
  - DIARRHOEA [None]
